FAERS Safety Report 18797882 (Version 1)
Quarter: 2021Q1

REPORT INFORMATION
  Report Type: Spontaneous
  Country: DE (occurrence: DE)
  Receive Date: 20210128
  Receipt Date: 20210128
  Transmission Date: 20210419
  Serious: Yes (Hospitalization)
  Sender: FDA-Public Use
  Company Number: DE-TEVA-2021-DE-1873039

PATIENT
  Age: 36 Year
  Sex: Male

DRUGS (12)
  1. METAMIZOL [Concomitant]
     Active Substance: METAMIZOLE SODIUM
     Dosage: 120 GTT DAILY; 30?30?30?30, DROPS
  2. MACROGOL [Concomitant]
     Active Substance: POLYETHYLENE GLYCOLS
     Dosage: 1 DOSAGE FORMS DAILY; 1?0?0?0
  3. VESIKUR [Suspect]
     Active Substance: SOLIFENACIN SUCCINATE
     Dosage: 5 MILLIGRAM DAILY; 1?0?0?0
  4. AMOXICILLIN W/POTASSIUM CLAVULANATE [Concomitant]
     Dosage: 2 DOSAGE FORMS DAILY; 875|125 MG, 1?0?1?0
  5. PANTOPRAZOL [Concomitant]
     Active Substance: PANTOPRAZOLE SODIUM
     Dosage: 80 MILLIGRAM DAILY; 1?0?1?0
  6. PROSTESS UNO [Concomitant]
     Active Substance: SERENOA REPENS WHOLE
     Dosage: 1 DOSAGE FORMS DAILY; 0?0?1?0
  7. PROMETHAZINE [Concomitant]
     Active Substance: PROMETHAZINE HYDROCHLORIDE
     Dosage: 10 DOSAGE FORMS DAILY; 5?0?5?0, DROPS
  8. ASS 100 [Suspect]
     Active Substance: ASPIRIN
     Dosage: 100 MILLIGRAM DAILY; 100 MG, 1?0?0?0
  9. LOSFERRON [Concomitant]
     Dosage: 1 DOSAGE FORMS DAILY; 0?0?1?0, EFFERVESCENT TABLETS
  10. TAMSULOSIN [Concomitant]
     Active Substance: TAMSULOSIN
     Dosage: .4 MILLIGRAM DAILY; 0.4 MG, 0?0?1?0
  11. BACLOFEN. [Suspect]
     Active Substance: BACLOFEN
     Dosage: 25 MG, 1?1?2?0
  12. ATORVASTATIN [Concomitant]
     Active Substance: ATORVASTATIN
     Dosage: 40 MILLIGRAM DAILY; 0?0?1?0

REACTIONS (2)
  - Upper respiratory tract irritation [Unknown]
  - Haematemesis [Unknown]
